FAERS Safety Report 6460255-9 (Version None)
Quarter: 2009Q4

REPORT INFORMATION
  Report Type: 
  Country: None (occurrence: None)
  Receive Date: 20091130
  Receipt Date: 20091116
  Transmission Date: 20100525
  Serious: Yes (Hospitalization, Disabling)
  Sender: FDA-Public Use
  Company Number: PHHY2009CA42610

PATIENT
  Sex: Female

DRUGS (10)
  1. DIOVAN [Suspect]
     Indication: HYPERTENSION
     Dosage: 80 MG DAILY
     Route: 048
     Dates: start: 20081230, end: 20090801
  2. EZETROL [Concomitant]
     Dosage: 1 TABLET (10 MG)/DAY
  3. RIVA-AMIODARONE [Concomitant]
     Dosage: 1 TABLET (200 MG)/DAY
  4. APO-AMITRIPTYLINE [Concomitant]
     Dosage: 1 TABLET (10 MG)/DAY
  5. COUMADIN [Concomitant]
     Dosage: 1 MG, UNK
  6. PMS-LACTULOSE [Concomitant]
     Dosage: 667 MG/ML
  7. RIVA-SENNA [Concomitant]
     Dosage: 1 TO 2 TABLETS
  8. NEXIUM [Concomitant]
     Dosage: 1 TABLET/DAY
  9. PMS-CODIENE [Concomitant]
  10. NORVASC [Concomitant]

REACTIONS (11)
  - ANAEMIA [None]
  - BLOOD PRESSURE DECREASED [None]
  - BLOOD SODIUM DECREASED [None]
  - FALL [None]
  - HIP FRACTURE [None]
  - INAPPROPRIATE ANTIDIURETIC HORMONE SECRETION [None]
  - MALNUTRITION [None]
  - NERVE COMPRESSION [None]
  - ORTHOSTATIC HYPOTENSION [None]
  - RADIAL NERVE INJURY [None]
  - SCIATICA [None]
